FAERS Safety Report 4341919-X (Version None)
Quarter: 2004Q2

REPORT INFORMATION
  Report Type: 
  Country: None (occurrence: None)
  Receive Date: 20040415
  Receipt Date: 20040409
  Transmission Date: 20050107
  Serious: Yes (Hospitalization)
  Sender: FDA-Public Use
  Company Number: 138640USA

PATIENT
  Age: 13 Year
  Sex: Female

DRUGS (4)
  1. PIMOZIDE [Suspect]
     Indication: TOURETTE'S DISORDER
     Dosage: 2 MILLIGRAM ORAL
     Route: 048
     Dates: start: 20020531, end: 20030715
  2. RISPERIDONE [Suspect]
     Indication: TOURETTE'S DISORDER
     Dosage: ORAL
     Route: 048
     Dates: start: 20030715, end: 20040201
  3. SERETIDE [Concomitant]
  4. ALBUTEROL SULFATE [Concomitant]

REACTIONS (4)
  - DIARRHOEA [None]
  - GASTRITIS [None]
  - RECTAL HAEMORRHAGE [None]
  - WEIGHT INCREASED [None]
